FAERS Safety Report 12664220 (Version 9)
Quarter: 2017Q2

REPORT INFORMATION
  Report Type: Report from Study
  Country: BR (occurrence: BR)
  Receive Date: 20160818
  Receipt Date: 20170426
  Transmission Date: 20170830
  Serious: Yes (Hospitalization, Other)
  Sender: FDA-Public Use
  Company Number: BR-VIIV HEALTHCARE LIMITED-BR2016GSK117821

PATIENT
  Age: 52 Year
  Sex: Female
  Weight: 66.4 kg

DRUGS (8)
  1. PREDNISONE. [Concomitant]
     Active Substance: PREDNISONE
  2. DOLUTEGRAVIR [Suspect]
     Active Substance: DOLUTEGRAVIR
     Indication: HIV INFECTION
     Dosage: 50 MG, QD
     Route: 048
     Dates: start: 20120301
  3. RITONAVIR. [Suspect]
     Active Substance: RITONAVIR
  4. ATORVASTATIN [Concomitant]
     Active Substance: ATORVASTATIN
     Dosage: 10 MG, QD
  5. DARUNAVIR [Suspect]
     Active Substance: DARUNAVIR
     Indication: HIV INFECTION
     Dosage: UNK
  6. NYSTATIN. [Concomitant]
     Active Substance: NYSTATIN
  7. DECADRON [Suspect]
     Active Substance: DEXAMETHASONE
     Dosage: 12 MG, QD
     Dates: start: 20160621, end: 20160720
  8. LAMIVUDINE + TENOFOVIR DISOPROXIL FUMARATE [Suspect]
     Active Substance: LAMIVUDINE\TENOFOVIR DISOPROXIL FUMARATE

REACTIONS (14)
  - Muscular weakness [Recovering/Resolving]
  - Tachycardia [Recovered/Resolved]
  - Vertigo [Recovering/Resolving]
  - Fall [Recovering/Resolving]
  - Cushingoid [Unknown]
  - Asthenia [Recovered/Resolved]
  - Tremor [Recovered/Resolved]
  - Balance disorder [Recovering/Resolving]
  - Palpitations [Recovered/Resolved]
  - Paraesthesia [Recovering/Resolving]
  - Diabetes mellitus [Unknown]
  - Myopathy [Unknown]
  - Adrenal insufficiency [Recovering/Resolving]
  - Gait disturbance [Recovering/Resolving]

NARRATIVE: CASE EVENT DATE: 20160727
